FAERS Safety Report 7759053-5 (Version None)
Quarter: 2011Q3

REPORT INFORMATION
  Report Type: 
  Country: None (occurrence: None)
  Receive Date: 20110919
  Receipt Date: 20110914
  Transmission Date: 20111222
  Serious: Yes (Other)
  Sender: FDA-Public Use
  Company Number: US-SANOFI-AVENTIS-2011SA048891

PATIENT
  Age: 79 Year
  Sex: Male
  Weight: 81.82 kg

DRUGS (12)
  1. ASCORBIC ACID [Concomitant]
  2. COENZYME Q10 [Concomitant]
  3. MULTAQ [Suspect]
     Route: 048
     Dates: start: 20100518
  4. FINASTERIDE [Concomitant]
     Indication: BENIGN PROSTATIC HYPERPLASIA
     Dates: start: 20100801
  5. VITAMIN B-12 [Concomitant]
  6. MULTAQ [Suspect]
     Route: 048
     Dates: end: 20110101
  7. LIPITOR [Suspect]
     Route: 065
     Dates: start: 20100501, end: 20100701
  8. FINASTERIDE [Concomitant]
     Dates: start: 20100801
  9. GABAPENTIN [Concomitant]
  10. FISH OIL [Concomitant]
  11. FAMOTIDINE [Concomitant]
  12. FINASTERIDE [Concomitant]
     Dates: start: 20100801

REACTIONS (5)
  - PROSTATE CANCER [None]
  - CONDITION AGGRAVATED [None]
  - LETHARGY [None]
  - UNDERDOSE [None]
  - HEART RATE DECREASED [None]
